FAERS Safety Report 9549692 (Version 1)
Quarter: 2013Q3

REPORT INFORMATION
  Report Type: Spontaneous
  Country: US (occurrence: None)
  Receive Date: 20130719
  Receipt Date: 20130719
  Transmission Date: 20140515
  Serious: Yes (Hospitalization)
  Sender: FDA-Public Use
  Company Number: 2012BAX022459

PATIENT
  Age: 62 Year
  Sex: Female

DRUGS (26)
  1. CYCLOPHOSPHAMIDE [Suspect]
     Indication: NEOPLASM MALIGNANT
     Dates: start: 20111017
  2. BORTEZOMIB [Suspect]
     Indication: PLASMA CELL MYELOMA
     Dosage: 1.9 MG, DAYS 8,11,15,18 EVERY 3 WKS, CYCLIC), INTRAVENOUS
     Route: 042
     Dates: start: 20100920, end: 20111013
  3. THALIDOMIDE(THALIDOMIDE) [Concomitant]
  4. TOCOPHEROL(TOCOPHEROL) [Concomitant]
  5. RETINOL(RETINOL) [Concomitant]
  6. ASCORBIC ACID (ASCORBIC ACID) [Concomitant]
  7. DEXAMETHASONE [Suspect]
     Indication: PLASMA CELL MYELOMA
     Dosage: 20 MG, DAYS 8,11,15,18,EVERY 3 WKS, CYCLIC), ORAL
     Route: 048
     Dates: start: 20100920, end: 20111013
  8. PD-0332991 [Suspect]
     Indication: PLASMA CELL MYELOMA
     Dosage: 100 MG, SCHEDULE B (12 DAYS ON, 9 DAYS OFF), ORAL
     Route: 048
     Dates: start: 20100913, end: 20111014
  9. ROSUVASTATIN (ROSUVASTATIN) [Concomitant]
  10. ONDANSETRON HYDROCHLORIDE (ONDANSETRON HYDROCHLORIDE) [Concomitant]
  11. CALCIUM CARBONATE (CALCIUM CARBONATE) [Concomitant]
  12. ACICLOVIR (ACICLOVIR) [Concomitant]
  13. ALPRAZOLAM (ALPRAZOLAM) [Concomitant]
  14. SALBUTAMOL (SALBUTAMOL) [Concomitant]
  15. ADVAIR (FLUTICASONE PROPIONATE, SALMETEROL XINAFOATE) [Concomitant]
  16. EFFEXOR (VENLAFAXINE HYDROCHLORIDE) [Concomitant]
  17. ALLOPURINOL (ALLOPURINOL) [Concomitant]
  18. CIPROFLOXACIN (CIPROFLOXACIN) [Concomitant]
  19. FLUCONAZOLE (FLUCONAZOLE) [Concomitant]
  20. OXYCODONE (OXYCODONE) [Concomitant]
  21. ZOLEDRONIC ACID (ZOLEDRONIC ACID) [Concomitant]
  22. PARACETAMOL (PARACTAMOL) [Concomitant]
  23. DIPHENHYDRAMINE (DIPHENHYDRAMINE) [Concomitant]
  24. PEGFILGRASTIM (PEGFILGRASTIM) [Concomitant]
  25. MESNA (MESNA) [Concomitant]
  26. FUROSEMIDE (FUROSEMIDE) [Concomitant]

REACTIONS (1)
  - Febrile neutropenia [None]
